FAERS Safety Report 4420993-6 (Version None)
Quarter: 2004Q3

REPORT INFORMATION
  Report Type: 
  Country: None (occurrence: None)
  Receive Date: 20040809
  Receipt Date: 20040610
  Transmission Date: 20050211
  Serious: Yes (Other)
  Sender: FDA-Public Use
  Company Number: US-GLAXOSMITHKLINE-A0514128A

PATIENT
  Age: 30 Year
  Sex: Female
  Weight: 70.5 kg

DRUGS (2)
  1. WELLBUTRIN [Suspect]
     Indication: DEPRESSION
     Route: 048
     Dates: start: 20040510, end: 20040601
  2. NO CONCURRENT MEDICATION [Concomitant]

REACTIONS (3)
  - DEPRESSION [None]
  - FLIGHT OF IDEAS [None]
  - SUICIDAL IDEATION [None]
